FAERS Safety Report 8526009 (Version 3)
Quarter: 2013Q2

REPORT INFORMATION
  Report Type: Spontaneous
  Country: US (occurrence: US)
  Receive Date: 20120423
  Receipt Date: 20130521
  Transmission Date: 20140414
  Serious: Yes (Other)
  Sender: FDA-Public Use
  Company Number: US-ROCHE-1061698

PATIENT
  Age: 15 Year
  Sex: Male
  Weight: 83.99 kg

DRUGS (2)
  1. ACCUTANE [Suspect]
     Indication: ACNE
     Route: 065
     Dates: start: 199612, end: 199707
  2. ACCUTANE [Suspect]
     Route: 065
     Dates: start: 200110, end: 200204

REACTIONS (12)
  - Crohn^s disease [Unknown]
  - Inflammatory bowel disease [Unknown]
  - Depression [Not Recovered/Not Resolved]
  - Injury [Unknown]
  - Anal fissure [Unknown]
  - Irritable bowel syndrome [Unknown]
  - Oropharyngeal pain [Unknown]
  - Pyrexia [Unknown]
  - Balanitis [Unknown]
  - Pharyngitis [Unknown]
  - Dry skin [Unknown]
  - Lip dry [Unknown]
